FAERS Safety Report 5027110-2 (Version None)
Quarter: 2006Q2

REPORT INFORMATION
  Report Type: 
  Country: None (occurrence: None)
  Receive Date: 20060612
  Receipt Date: 20060530
  Transmission Date: 20061013
  Serious: Yes (Hospitalization)
  Sender: FDA-Public Use
  Company Number: HQWYE352116MAY06

PATIENT
  Sex: Male
  Weight: 4.09 kg

DRUGS (1)
  1. EFFEXOR XR [Suspect]
     Dosage: 300 MG 1X PER 1 DAY, TRANSPLACENTAL
     Route: 064
     Dates: start: 20020101

REACTIONS (18)
  - APGAR SCORE LOW [None]
  - BODY TEMPERATURE DECREASED [None]
  - BRADYCARDIA NEONATAL [None]
  - BREECH PRESENTATION [None]
  - CAESAREAN SECTION [None]
  - DRUG EXPOSURE DURING PREGNANCY [None]
  - DRUG EXPOSURE VIA BREAST MILK [None]
  - FEEDING DISORDER NEONATAL [None]
  - FLOPPY INFANT [None]
  - GRUNTING [None]
  - INFANTILE APNOEIC ATTACK [None]
  - NEONATAL DISORDER [None]
  - NEONATAL RESPIRATORY DISTRESS SYNDROME [None]
  - OXYGEN SATURATION DECREASED [None]
  - PALLOR [None]
  - POOR WEIGHT GAIN NEONATAL [None]
  - SEPSIS NEONATAL [None]
  - SOMNOLENCE NEONATAL [None]
